FAERS Safety Report 8126404-1 (Version None)
Quarter: 2012Q1

REPORT INFORMATION
  Report Type: 
  Country: None (occurrence: None)
  Receive Date: 20120209
  Receipt Date: 20120104
  Transmission Date: 20120608
  Serious: Yes (Death)
  Sender: FDA-Public Use
  Company Number: PHHY2012DK001035

PATIENT
  Age: 43 Year
  Sex: Male
  Weight: 93 kg

DRUGS (18)
  1. MIRTAZAPINE [Concomitant]
     Dosage: 45 MG, UNK
  2. LORATADINE [Concomitant]
     Dosage: 10 MG, UNK
  3. ZOLPIDEM [Concomitant]
     Dosage: 10 MG, UNK
  4. PHENOXYMETHYLPENICILLIN [Concomitant]
     Indication: PERIORBITAL OEDEMA
     Dosage: 1 MIE
     Dates: start: 20080122, end: 20080131
  5. PHENOXYMETHYLPENICILLIN [Concomitant]
     Route: 048
  6. CLOZAPINE [Suspect]
     Indication: SCHIZOPHRENIA, PARANOID TYPE
     Dosage: 500 MG, QD
     Dates: start: 19990922
  7. THIAMINE HCL [Concomitant]
     Dosage: 300 MG, UNK
  8. ESCITALOPRAM [Concomitant]
     Dosage: 10 MG, UNK
  9. LANSOPRAZOLE [Concomitant]
     Dosage: 30 MG, UNK
  10. NASONEX [Concomitant]
     Indication: PERIORBITAL OEDEMA
     Route: 048
  11. ACETAMINOPHEN [Concomitant]
     Indication: PAIN IN EXTREMITY
     Dosage: UNK
     Dates: start: 20080303
  12. IBUPROFEN [Concomitant]
     Dosage: 1.2 G, UNK
     Route: 048
     Dates: start: 20080122, end: 20080131
  13. CENTYL K [Concomitant]
  14. CETIRIZINE [Concomitant]
     Dosage: 10 MG, UNK
     Dates: start: 20080121
  15. AMOXICILLIN [Concomitant]
     Dosage: 500 MG, UNK
     Dates: start: 20080122, end: 20080131
  16. VEPICOMBIN [Concomitant]
     Dosage: UNK
     Dates: start: 20080616
  17. SERTINDOLE [Suspect]
     Indication: SCHIZOPHRENIA, PARANOID TYPE
     Dosage: 16 MG, QD
     Route: 048
     Dates: start: 20080111
  18. HYOSCYAMINE [Concomitant]
     Dosage: 0.2 MG, UNK

REACTIONS (2)
  - CIRRHOSIS ALCOHOLIC [None]
  - OESOPHAGEAL VARICES HAEMORRHAGE [None]
